FAERS Safety Report 8504913-0 (Version None)
Quarter: 2012Q3

REPORT INFORMATION
  Report Type: 
  Country: None (occurrence: None)
  Receive Date: 20120712
  Receipt Date: 20120706
  Transmission Date: 20120928
  Serious: No
  Sender: FDA-Public Use
  Company Number: PHEH2012US013454

PATIENT
  Sex: Female
  Weight: 74.83 kg

DRUGS (12)
  1. LASIX [Concomitant]
  2. ALLOPURINOL [Concomitant]
  3. TASIGNA [Suspect]
     Dosage: 300 MG, BID
     Route: 048
  4. PROMETRIUM [Concomitant]
  5. VIVELLE [Concomitant]
  6. PROBIOTICS NOS [Concomitant]
  7. HYDREA [Concomitant]
  8. PRILOSEC [Concomitant]
  9. ALEVE [Concomitant]
  10. SYNTHROID [Concomitant]
  11. ACIDOPHILUS [Concomitant]
  12. PHENAZOPYRIDINE HCL TAB [Concomitant]

REACTIONS (1)
  - RASH GENERALISED [None]
